FAERS Safety Report 15461319 (Version 4)
Quarter: 2020Q3

REPORT INFORMATION
  Report Type: Spontaneous
  Country: US (occurrence: US)
  Receive Date: 20181003
  Receipt Date: 20200724
  Transmission Date: 20201102
  Serious: Yes (Other)
  Sender: FDA-Public Use
  Company Number: US-AVEDRO-AVE-2018-0219-AE

PATIENT
  Age: 17 Year
  Sex: Male

DRUGS (8)
  1. OFLOXACIN. [Suspect]
     Active Substance: OFLOXACIN
     Indication: PRODUCT USED FOR UNKNOWN INDICATION
     Dosage: 1 DROP OF 0.3% APPLIED TO CORNEA
     Route: 047
     Dates: start: 201809
  2. PRED FORTE [Suspect]
     Active Substance: PREDNISOLONE ACETATE
     Dosage: 1% FOUR TIMES DAILY
     Route: 047
     Dates: start: 201809
  3. BANDAGE CONTACT LENS [Suspect]
     Active Substance: DEVICE
     Indication: PRODUCT USED FOR UNKNOWN INDICATION
     Route: 047
  4. KXL SYSTEM [Suspect]
     Active Substance: DEVICE
     Indication: KERATOCONUS
     Dosage: 365 MW AT 3 MW/CM
     Route: 047
     Dates: start: 20180905, end: 20180905
  5. DICLOFENAC [Suspect]
     Active Substance: DICLOFENAC
     Indication: PRODUCT USED FOR UNKNOWN INDICATION
     Dosage: ONE DROP 0.1%
     Route: 047
     Dates: start: 20180905, end: 20180905
  6. OFLOXACIN. [Suspect]
     Active Substance: OFLOXACIN
     Dosage: 0.3% FOUR TIMES DAILY
     Route: 047
  7. PHOTREXA VISCOUS [Suspect]
     Active Substance: RIBOFLAVIN 5^-PHOSPHATE SODIUM
     Indication: KERATOCONUS
     Dosage: 1 DROP EVERY 2 MINUTES FOR 30 MINUTES AND THEN EVERY 2 MINUTES DURING THE UV EXPOSURE
     Route: 047
     Dates: start: 20180905, end: 20180905
  8. PRED FORTE [Suspect]
     Active Substance: PREDNISOLONE ACETATE
     Indication: PRODUCT USED FOR UNKNOWN INDICATION
     Dosage: 1 DROP OF 1% APPLIED TO CORNEA
     Route: 047

REACTIONS (17)
  - Corneal transplant [Recovered/Resolved]
  - Corneal infiltrates [Unknown]
  - Keratitis [Unknown]
  - Bacterial infection [Unknown]
  - Eye pain [Recovered/Resolved]
  - Hypopyon [Recovering/Resolving]
  - Seidel test positive [Unknown]
  - Corneal thinning [Unknown]
  - Corneal epithelium defect [Unknown]
  - Corneal opacity [Unknown]
  - Corneal perforation [Unknown]
  - Keratitis bacterial [Unknown]
  - Ulcerative keratitis [Recovering/Resolving]
  - Visual impairment [Unknown]
  - Flat anterior chamber of eye [Unknown]
  - Aqueous humour leakage [Unknown]
  - Visual impairment [Unknown]

NARRATIVE: CASE EVENT DATE: 201809
